FAERS Safety Report 10534441 (Version 2)
Quarter: 2014Q4

REPORT INFORMATION
  Report Type: Not Available
  Country: SE (occurrence: SE)
  Receive Date: 20141022
  Receipt Date: 20141104
  Transmission Date: 20150529
  Serious: Yes (Hospitalization)
  Sender: FDA-Public Use
  Company Number: SE-MUNDIPHARMA DS AND PHARMACOVIGILANCE-GBR-2014-0023195

PATIENT
  Age: 78 Year
  Sex: Female

DRUGS (24)
  1. FURIX [Concomitant]
     Active Substance: FUROSEMIDE
  2. SOBRIL [Concomitant]
     Active Substance: OXAZEPAM
  3. CITALOPRAM [Concomitant]
     Active Substance: CITALOPRAM HYDROBROMIDE
  4. KETOGAN NOVUM [Concomitant]
  5. KALCIPOS-D [Concomitant]
     Active Substance: CALCIUM CARBONATE\CHOLECALCIFEROL
  6. MILDISON LIPID [Concomitant]
  7. LOCOID LIPID [Concomitant]
  8. MOLLIPECT [Concomitant]
     Active Substance: BROMHEXINE
     Route: 048
  9. NORFLEX [Concomitant]
     Active Substance: ORPHENADRINE CITRATE
  10. MOVICOL [Concomitant]
     Active Substance: POLYETHYLENE GLYCOL 3350\POTASSIUM CHLORIDE\SODIUM BICARBONATE\SODIUM CHLORIDE
  11. ERGENYL CHRONO [Concomitant]
     Active Substance: VALPROIC ACID
  12. DOLCONTIN [Suspect]
     Active Substance: MORPHINE
     Indication: PAIN
     Dosage: HALF
  13. ATENOLOL. [Concomitant]
     Active Substance: ATENOLOL
  14. HEMINEVRIN                         /00027501/ [Concomitant]
  15. NICOTINELL                         /01033301/ [Concomitant]
     Dosage: 21 MG, 24H
     Route: 062
  16. DOLCONTIN [Suspect]
     Active Substance: MORPHINE
     Dosage: 10 MG, TID
     Route: 048
     Dates: start: 20140902
  17. TROMBYL [Concomitant]
     Active Substance: ASPIRIN
  18. BEHEPAN [Concomitant]
     Active Substance: HYDROXOCOBALAMIN
  19. ALVEDON [Concomitant]
     Active Substance: ACETAMINOPHEN
  20. STESOLID [Concomitant]
     Active Substance: DIAZEPAM
     Dosage: 5 MG/ML, UNK
     Route: 054
  21. SPIRONOLACTONE. [Concomitant]
     Active Substance: SPIRONOLACTONE
  22. ENALAPRIL [Concomitant]
     Active Substance: ENALAPRIL
  23. ZOPICLONE [Concomitant]
     Active Substance: ZOPICLONE
  24. CILAXORAL [Concomitant]
     Route: 048

REACTIONS (3)
  - Urinary retention [Recovering/Resolving]
  - C-reactive protein increased [Recovering/Resolving]
  - Blood creatinine increased [Recovering/Resolving]

NARRATIVE: CASE EVENT DATE: 20140916
